FAERS Safety Report 13064028 (Version 2)
Quarter: 2017Q1

REPORT INFORMATION
  Report Type: Spontaneous
  Country: US (occurrence: US)
  Receive Date: 20161227
  Receipt Date: 20170120
  Transmission Date: 20170428
  Serious: No
  Sender: FDA-Public Use
  Company Number: US-PFIZER INC-2016593835

PATIENT
  Age: 48 Year
  Sex: Female
  Weight: 77 kg

DRUGS (13)
  1. PRILOSEC [Concomitant]
     Active Substance: OMEPRAZOLE MAGNESIUM
     Indication: GASTRIC DISORDER
     Dosage: 15 MG, 1X/DAY
  2. LOPRESSOR [Concomitant]
     Active Substance: METOPROLOL TARTRATE
     Indication: BLOOD PRESSURE ABNORMAL
     Dosage: 40 MG, 1X/DAY
  3. AMANTADINE [Concomitant]
     Active Substance: AMANTADINE
     Indication: FATIGUE
     Dosage: 100 MG, 1X/DAY FOR 1 WEEK
  4. ALLEGRA [Concomitant]
     Active Substance: FEXOFENADINE HYDROCHLORIDE
     Indication: HYPERSENSITIVITY
     Dosage: AS NEEDED
  5. AUBAGIO [Concomitant]
     Active Substance: TERIFLUNOMIDE
     Indication: MULTIPLE SCLEROSIS
     Dosage: 14 MG, 1X/DAY
     Dates: start: 201503
  6. GABAPENTIN. [Suspect]
     Active Substance: GABAPENTIN
     Dosage: 300 MG CAPSULE, 3X/DAY
  7. AMLODIPINE BESYLATE. [Concomitant]
     Active Substance: AMLODIPINE BESYLATE
     Indication: BLOOD PRESSURE ABNORMAL
     Dosage: 5 MG, 1X/DAY
  8. LYRICA [Concomitant]
     Active Substance: PREGABALIN
     Indication: NEURALGIA
     Dosage: 50 MG CAPSULE
  9. NAPROXEN SODIUM. [Concomitant]
     Active Substance: NAPROXEN SODIUM
     Indication: ARTHRALGIA
     Dosage: 150 MG, 2X/DAY
  10. LYRICA [Concomitant]
     Active Substance: PREGABALIN
     Dosage: 75 MG CAPSULE
  11. VENLAFAXINE XR [Concomitant]
     Active Substance: VENLAFAXINE HYDROCHLORIDE
     Indication: DEPRESSION
     Dosage: 37.5 MG, 1X/DAY
  12. AMANTADINE [Concomitant]
     Active Substance: AMANTADINE
     Dosage: 100 MG, 2X/DAY FOR SUCCEEDING WEEKS
  13. GABAPENTIN. [Suspect]
     Active Substance: GABAPENTIN
     Indication: NEUROPATHY PERIPHERAL
     Dosage: 600 MG CAPSULE, 3X/DAY
     Route: 048

REACTIONS (3)
  - Neuropathy peripheral [Unknown]
  - Condition aggravated [Unknown]
  - Drug ineffective for unapproved indication [Unknown]
